FAERS Safety Report 13182756 (Version 1)
Quarter: 2017Q1

REPORT INFORMATION
  Report Type: Spontaneous
  Country: DE (occurrence: DE)
  Receive Date: 20170203
  Receipt Date: 20170203
  Transmission Date: 20170428
  Serious: Yes (Other)
  Sender: FDA-Public Use
  Company Number: ALCN2016DE006124

PATIENT
  Age: 81 Year
  Sex: Male

DRUGS (3)
  1. AZOPT [Suspect]
     Active Substance: BRINZOLAMIDE
     Indication: GLAUCOMA
     Dosage: 1 DF, BID
     Route: 047
     Dates: end: 2015
  2. MICTONETTEN [Concomitant]
     Indication: PRODUCT USED FOR UNKNOWN INDICATION
     Dosage: UNK
     Route: 065
  3. AZOPT [Suspect]
     Active Substance: BRINZOLAMIDE
     Indication: INTRAOCULAR PRESSURE INCREASED
     Dosage: 1 GTT, TID
     Route: 047
     Dates: start: 2016

REACTIONS (13)
  - Sneezing [Unknown]
  - Dizziness [Unknown]
  - Thirst decreased [Unknown]
  - Senile dementia [Unknown]
  - Dyspnoea [Unknown]
  - Hypotension [Unknown]
  - Erectile dysfunction [Unknown]
  - Dry eye [Unknown]
  - Somnolence [Unknown]
  - Dry mouth [Unknown]
  - Mental impairment [Unknown]
  - Memory impairment [Unknown]
  - Visual acuity reduced [Unknown]
